FAERS Safety Report 20947748 (Version 1)
Quarter: 2022Q2

REPORT INFORMATION
  Report Type: Spontaneous
  Country: CN (occurrence: None)
  Receive Date: 20220611
  Receipt Date: 20220611
  Transmission Date: 20220721
  Serious: Yes (Other)
  Sender: FDA-Public Use
  Company Number: CN-ROCHE-3115894

PATIENT
  Age: 57 Year
  Sex: Female

DRUGS (25)
  1. AVASTIN [Suspect]
     Active Substance: BEVACIZUMAB
     Indication: Rectal cancer
     Dosage: TREATMENT WITH FOLFIRI FOR 1 CYCLE
     Route: 065
     Dates: start: 20220106
  2. AVASTIN [Suspect]
     Active Substance: BEVACIZUMAB
     Dosage: TREATMENT WITH MFOLFOX6 FOR 1 CYCLE
     Route: 065
     Dates: start: 20220122
  3. AVASTIN [Suspect]
     Active Substance: BEVACIZUMAB
     Dosage: TREATMENT WITH MFOLFOX6 FOR 2 CYCLE
     Route: 065
     Dates: start: 20220311
  4. OXALIPLATIN [Concomitant]
     Active Substance: OXALIPLATIN
     Indication: Rectal cancer
     Dates: start: 202110
  5. OXALIPLATIN [Concomitant]
     Active Substance: OXALIPLATIN
     Dosage: FOR 2 CYCLES
     Dates: start: 202110
  6. OXALIPLATIN [Concomitant]
     Active Substance: OXALIPLATIN
     Dates: start: 20220105
  7. OXALIPLATIN [Concomitant]
     Active Substance: OXALIPLATIN
     Dosage: FOR 1 CYCLES
     Dates: start: 20220122
  8. OXALIPLATIN [Concomitant]
     Active Substance: OXALIPLATIN
     Dosage: FOR 2 CYCLES
     Dates: start: 20220311
  9. CAPECITABINE [Concomitant]
     Active Substance: CAPECITABINE
     Indication: Rectal cancer
     Dates: start: 202110
  10. CAPECITABINE [Concomitant]
     Active Substance: CAPECITABINE
     Dosage: FOR 2 CYCLES
     Dates: start: 202110
  11. IRINOTECAN [Concomitant]
     Active Substance: IRINOTECAN
     Indication: Rectal cancer
     Dates: start: 202110
  12. IRINOTECAN [Concomitant]
     Active Substance: IRINOTECAN
     Dates: start: 20220105
  13. IRINOTECAN [Concomitant]
     Active Substance: IRINOTECAN
     Dosage: FOR 1 CYCLES
     Dates: start: 20220106
  14. FLUOROURACIL [Concomitant]
     Active Substance: FLUOROURACIL
     Indication: Rectal cancer
     Dates: start: 20220105
  15. FLUOROURACIL [Concomitant]
     Active Substance: FLUOROURACIL
     Dosage: FOR 1 CYCLES
     Dates: start: 20220106
  16. FLUOROURACIL [Concomitant]
     Active Substance: FLUOROURACIL
     Dosage: FOR 1 CYCLES
     Dates: start: 20220122
  17. FLUOROURACIL [Concomitant]
     Active Substance: FLUOROURACIL
     Dosage: FOR 2 CYCLES
     Dates: start: 20220311
  18. LEUCOVORIN CALCIUM [Concomitant]
     Active Substance: LEUCOVORIN CALCIUM
     Indication: Rectal cancer
     Dosage: FOR 1 CYCLES
     Dates: start: 20220106
  19. LEUCOVORIN CALCIUM [Concomitant]
     Active Substance: LEUCOVORIN CALCIUM
     Dosage: FOR 1 CYCLES
     Dates: start: 20220122
  20. LEUCOVORIN CALCIUM [Concomitant]
     Active Substance: LEUCOVORIN CALCIUM
     Dosage: FOR 2 CYCLES
     Dates: start: 20220311
  21. AMLODIPINE [Concomitant]
     Active Substance: AMLODIPINE BESYLATE
     Indication: Hypertension
  22. PERINDOPRIL [Concomitant]
     Active Substance: PERINDOPRIL
     Indication: Hypertension
  23. AMLODIPINE [Concomitant]
     Active Substance: AMLODIPINE BESYLATE
  24. METOPROLOL [Concomitant]
     Active Substance: METOPROLOL
     Indication: Hypertension
  25. SPIRONOLACTONE [Concomitant]
     Active Substance: SPIRONOLACTONE
     Indication: Hypertension

REACTIONS (2)
  - Myelosuppression [Unknown]
  - Granulocyte count decreased [Unknown]
